FAERS Safety Report 24185175 (Version 1)
Quarter: 2024Q3

REPORT INFORMATION
  Report Type: Spontaneous
  Country: US (occurrence: US)
  Receive Date: 20240807
  Receipt Date: 20240807
  Transmission Date: 20241017
  Serious: No
  Sender: GLENMARK
  Company Number: US-GLENMARK PHARMACEUTICALS-2024GMK090406

PATIENT

DRUGS (1)
  1. RYALTRIS [Suspect]
     Active Substance: MOMETASONE FUROATE MONOHYDRATE\OLOPATADINE HYDROCHLORIDE
     Indication: Hypersensitivity
     Dosage: 1 DOSAGE FORM, BID (ONE SPRAY IN EACH NOSTRIL TWICE DAILY)
     Route: 045

REACTIONS (7)
  - Product prescribing issue [Unknown]
  - Wrong technique in product usage process [Unknown]
  - Drug dose omission by device [Unknown]
  - Treatment delayed [Unknown]
  - Device delivery system issue [Unknown]
  - Device failure [Unknown]
  - Product closure issue [Unknown]

NARRATIVE: CASE EVENT DATE: 20240414
